FAERS Safety Report 14842355 (Version 2)
Quarter: 2018Q3

REPORT INFORMATION
  Report Type: Spontaneous
  Country: US (occurrence: US)
  Receive Date: 20180503
  Receipt Date: 20180731
  Transmission Date: 20181010
  Serious: Yes (Other)
  Sender: FDA-Public Use
  Company Number: US-JNJFOC-20180432854

PATIENT
  Sex: Male
  Weight: 61.69 kg

DRUGS (1)
  1. REMICADE [Suspect]
     Active Substance: INFLIXIMAB
     Indication: CROHN^S DISEASE
     Route: 042
     Dates: start: 20150914

REACTIONS (3)
  - Drug level below therapeutic [Recovered/Resolved]
  - Fistula [Recovered/Resolved]
  - Crohn^s disease [Recovered/Resolved]
